FAERS Safety Report 13239463 (Version 5)
Quarter: 2017Q1

REPORT INFORMATION
  Report Type: Spontaneous
  Country: KR (occurrence: KR)
  Receive Date: 20170216
  Receipt Date: 20170316
  Transmission Date: 20170428
  Serious: Yes (Life-Threatening, Hospitalization, Other)
  Sender: FDA-Public Use
  Company Number: KR-SYNTHON BV-NL01PV17_43022

PATIENT
  Age: 48 Year
  Sex: Male

DRUGS (2)
  1. LEVOCETIRIZINE DIHYDROCHLORIDE. [Suspect]
     Active Substance: LEVOCETIRIZINE DIHYDROCHLORIDE
     Indication: NEURODERMATITIS
     Dosage: 5 MG, DAILY
  2. BEPOTASTINE BESILATE [Concomitant]
     Active Substance: BEPOTASTINE BESILATE
     Indication: NEURODERMATITIS
     Dosage: 10 MG, DAILY

REACTIONS (1)
  - Drug-induced liver injury [Recovered/Resolved]
